FAERS Safety Report 11627912 (Version 1)
Quarter: 2015Q4

REPORT INFORMATION
  Report Type: Report from Study
  Country: US (occurrence: US)
  Receive Date: 20151014
  Receipt Date: 20151014
  Transmission Date: 20160304
  Serious: No
  Sender: FDA-Public Use
  Company Number: US-AMGEN-USASL2015105023

PATIENT
  Sex: Female

DRUGS (1)
  1. ENBREL [Suspect]
     Active Substance: ETANERCEPT
     Indication: RHEUMATOID ARTHRITIS
     Dosage: 50 MG, QWK
     Route: 065
     Dates: start: 201506

REACTIONS (8)
  - Pharyngitis [Recovering/Resolving]
  - Drug effect incomplete [Not Recovered/Not Resolved]
  - Nasopharyngitis [Unknown]
  - Ear swelling [Recovering/Resolving]
  - Pain [Not Recovered/Not Resolved]
  - Feeling hot [Recovering/Resolving]
  - Influenza [Unknown]
  - Lymphadenopathy [Recovering/Resolving]
